FAERS Safety Report 7164791-1 (Version None)
Quarter: 2010Q4

REPORT INFORMATION
  Report Type: 
  Country: None (occurrence: None)
  Receive Date: 20101215
  Receipt Date: 20101210
  Transmission Date: 20110411
  Serious: Yes (Hospitalization, Other)
  Sender: FDA-Public Use
  Company Number: GB-PFIZER INC-2010167627

PATIENT
  Age: 15 Year
  Sex: Male

DRUGS (6)
  1. PARACETAMOL [Suspect]
     Route: 048
  2. SERTRALINE HYDROCHLORIDE [Suspect]
     Route: 048
  3. ACETYLSALICYLIC ACID [Suspect]
     Route: 048
  4. AMPHETAMINE SULFATE [Suspect]
     Route: 048
  5. MELATONIN [Suspect]
     Route: 048
  6. METHYLPHENIDATE [Suspect]
     Route: 048

REACTIONS (2)
  - ELECTROCARDIOGRAM QT INTERVAL ABNORMAL [None]
  - MULTIPLE DRUG OVERDOSE [None]
